FAERS Safety Report 4752911-5 (Version None)
Quarter: 2005Q3

REPORT INFORMATION
  Report Type: 
  Country: None (occurrence: None)
  Receive Date: 20050714
  Receipt Date: 20040827
  Transmission Date: 20060218
  Serious: Yes (Hospitalization, Other)
  Sender: FDA-Public Use
  Company Number: 200416470US

PATIENT
  Age: 71 Year
  Sex: Female
  Weight: 71 kg

DRUGS (4)
  1. TAXOTERE [Suspect]
     Indication: BREAST CANCER METASTATIC
     Dosage: 35 MG/M**2 Q3W
  2. MORPHINE SULFATE [Concomitant]
  3. OXYCODONE [Concomitant]
  4. LAXATIVE (NOS) [Concomitant]

REACTIONS (2)
  - ANAEMIA [None]
  - HAEMATOCRIT DECREASED [None]
